FAERS Safety Report 15425433 (Version 1)
Quarter: 2018Q3

REPORT INFORMATION
  Report Type: Spontaneous
  Country: US (occurrence: US)
  Receive Date: 20180919
  Receipt Date: 20180919
  Transmission Date: 20181010
  Serious: No
  Sender: FDA-Public Use
  Company Number: None

PATIENT
  Age: 70 Year
  Sex: Female

DRUGS (1)
  1. REPATHA [Suspect]
     Active Substance: EVOLOCUMAB
     Indication: HYPERLIPIDAEMIA
     Route: 058
     Dates: start: 20180824

REACTIONS (5)
  - Incorrect dose administered [None]
  - Rhinorrhoea [None]
  - Needle issue [None]
  - Device defective [None]
  - Cough [None]

NARRATIVE: CASE EVENT DATE: 20180824
